FAERS Safety Report 17789761 (Version 1)
Quarter: 2020Q2

REPORT INFORMATION
  Report Type: Spontaneous
  Country: FR (occurrence: FR)
  Receive Date: 20200514
  Receipt Date: 20200514
  Transmission Date: 20200714
  Serious: Yes (Hospitalization)
  Sender: FDA-Public Use
  Company Number: FR-009507513-2005FRA003538

PATIENT
  Age: 22 Year
  Sex: Male

DRUGS (9)
  1. CETIRIZINE HYDROCHLORIDE. [Suspect]
     Active Substance: CETIRIZINE HYDROCHLORIDE
     Indication: SUICIDE ATTEMPT
     Dosage: 220 MILLIGRAM, ONCE (1 TOTAL)
     Route: 048
     Dates: start: 20200325
  2. ESOMEPRAZOLE. [Suspect]
     Active Substance: ESOMEPRAZOLE MAGNESIUM
     Indication: SUICIDE ATTEMPT
     Dosage: 840 MILLIGRAM, ONCE (1 TOTAL)
     Route: 048
     Dates: start: 20200325
  3. AMOXICILLIN. [Suspect]
     Active Substance: AMOXICILLIN
     Indication: SUICIDE ATTEMPT
     Dosage: 7 GRAM, ONCE (1 TOTAL)
     Route: 048
     Dates: start: 20200325
  4. ALCOHOL. [Concomitant]
     Active Substance: ALCOHOL
     Indication: SUICIDE ATTEMPT
     Dosage: UNK
  5. MAXILASE [Suspect]
     Active Substance: PANCRELIPASE
     Indication: SUICIDE ATTEMPT
     Dosage: 15 DOSAGE FORM, ONCE (1 TOTAL)
     Dates: start: 20200325
  6. ACETAMINOPHEN. [Suspect]
     Active Substance: ACETAMINOPHEN
     Indication: SUICIDE ATTEMPT
     Dosage: 8 GRAM, ONCE (1TOTAL)
     Route: 048
     Dates: start: 20200325
  7. IBUPROFEN. [Suspect]
     Active Substance: IBUPROFEN
     Indication: SUICIDE ATTEMPT
     Dosage: 20 DOSAGE FORM, ONCE (1 TOTAL)
     Route: 048
     Dates: start: 20200325
  8. TIORFAN [Suspect]
     Active Substance: RACECADOTRIL
     Indication: SUICIDE ATTEMPT
     Dosage: 12 DOSAGE FORM, ONCE (1 TOTAL)
     Route: 048
     Dates: start: 20200325
  9. DESLORATADINE. [Suspect]
     Active Substance: DESLORATADINE
     Indication: SUICIDE ATTEMPT
     Dosage: 75 MILLIGRAM, ONCE (1 TOTAL)
     Route: 048
     Dates: start: 20200325

REACTIONS (4)
  - Vomiting [Recovered/Resolved]
  - Drug level increased [Recovered/Resolved]
  - Abdominal pain upper [Recovered/Resolved]
  - Intentional overdose [Recovered/Resolved]

NARRATIVE: CASE EVENT DATE: 20200325
